FAERS Safety Report 13973109 (Version 2)
Quarter: 2017Q3

REPORT INFORMATION
  Report Type: Spontaneous
  Country: CA (occurrence: CA)
  Receive Date: 20170914
  Receipt Date: 20170929
  Transmission Date: 20171128
  Serious: Yes (Death, Hospitalization)
  Sender: FDA-Public Use
  Company Number: CA-ABBVIE-17K-028-2102332-00

PATIENT
  Age: 50 Year
  Sex: Male

DRUGS (5)
  1. PROLIA [Concomitant]
     Active Substance: DENOSUMAB
     Indication: OSTEOPOROSIS
     Route: 030
  2. PREDNISONE. [Concomitant]
     Active Substance: PREDNISONE
     Indication: CROHN^S DISEASE
     Dosage: 5-10 MG. FREQUENCY TEXT:DAILY
     Route: 048
  3. HUMIRA [Suspect]
     Active Substance: ADALIMUMAB
     Indication: HIDRADENITIS
     Route: 058
     Dates: start: 201705, end: 201708
  4. VITAMIN B12 [Concomitant]
     Active Substance: CYANOCOBALAMIN
     Indication: VITAMIN B12 DEFICIENCY
     Route: 058
  5. METOPROLOL. [Concomitant]
     Active Substance: METOPROLOL
     Indication: PRODUCT USED FOR UNKNOWN INDICATION
     Route: 048

REACTIONS (9)
  - Eosinophilia [Fatal]
  - Malaise [Unknown]
  - Chronic kidney disease [Unknown]
  - Hospitalisation [Unknown]
  - White blood cell count increased [Fatal]
  - Hyperthyroidism [Unknown]
  - Inadequate diet [Unknown]
  - Decreased appetite [Unknown]
  - Dry skin [Unknown]

NARRATIVE: CASE EVENT DATE: 2017
